FAERS Safety Report 9867507 (Version 1)
Quarter: 2014Q1

REPORT INFORMATION
  Report Type: Spontaneous
  Country: US (occurrence: US)
  Receive Date: 20140204
  Receipt Date: 20140204
  Transmission Date: 20141002
  Serious: No
  Sender: FDA-Public Use
  Company Number: US-GALDERMA-US12415911

PATIENT
  Age: 37 Year
  Sex: Male

DRUGS (3)
  1. EPIDUO (ADAPALENE, BENZOYL PEROXIDE) GEL 0.1% / 2.5% [Suspect]
     Indication: ACNE
     Route: 061
     Dates: start: 201210
  2. UNSPECIFIED TEA TREE OIL CLEANSER [Concomitant]
     Indication: THERAPEUTIC SKIN CARE TOPICAL
     Route: 061
     Dates: start: 201211
  3. UNSPECIFIED SUPPLEMENTS [Concomitant]
     Dates: start: 201206

REACTIONS (7)
  - Acne [Not Recovered/Not Resolved]
  - Erythema [Recovered/Resolved]
  - Dry skin [Recovered/Resolved]
  - Pruritus [Recovered/Resolved]
  - Skin burning sensation [Recovered/Resolved]
  - Skin hyperpigmentation [Not Recovered/Not Resolved]
  - Drug ineffective [Not Recovered/Not Resolved]
